FAERS Safety Report 10354729 (Version 1)
Quarter: 2014Q3

REPORT INFORMATION
  Report Type: Spontaneous
  Country: US (occurrence: None)
  Receive Date: 20140729
  Receipt Date: 20140729
  Transmission Date: 20150326
  Serious: Yes (Other)
  Sender: FDA-Public Use
  Company Number: None

PATIENT
  Age: 58 Year
  Sex: Male
  Weight: 72.58 kg

DRUGS (1)
  1. PICATO [Suspect]
     Active Substance: INGENOL MEBUTATE
     Indication: ACTINIC KERATOSIS
     Dosage: 3 APPLICATIONS 1 DAY APART?ONCE DAILY?APPLIED TO A SURFACE USUALLY THE SKIN
     Route: 061
     Dates: start: 20140725, end: 20140726

REACTIONS (3)
  - Application site vesicles [None]
  - Skin exfoliation [None]
  - Application site swelling [None]

NARRATIVE: CASE EVENT DATE: 20140726
